FAERS Safety Report 24607273 (Version 2)
Quarter: 2024Q4

REPORT INFORMATION
  Report Type: Report from Study
  Country: US (occurrence: US)
  Receive Date: 20241112
  Receipt Date: 20241114
  Transmission Date: 20250114
  Serious: No
  Sender: ROCHE
  Company Number: US-ROCHE-2756361

PATIENT
  Age: 26 Year
  Sex: Female
  Weight: 60.78 kg

DRUGS (4)
  1. OCREVUS [Suspect]
     Active Substance: OCRELIZUMAB
     Indication: Multiple sclerosis
     Dosage: 600 MG INTRAVENOUSLY EVERY 6 MONTHS
     Route: 042
     Dates: start: 20170728
  2. OCREVUS [Suspect]
     Active Substance: OCRELIZUMAB
     Dosage: 600 MG INTRAVENOUSLY EVERY 6 MONTHS
     Route: 042
     Dates: start: 20170811
  3. OCREVUS [Suspect]
     Active Substance: OCRELIZUMAB
     Dosage: STOP DATE: //2019
     Route: 042
     Dates: start: 20180126
  4. FISH OIL [Concomitant]
     Active Substance: FISH OIL

REACTIONS (5)
  - Maternal exposure during pregnancy [Unknown]
  - Optic neuritis [Not Recovered/Not Resolved]
  - Demyelination [Not Recovered/Not Resolved]
  - Myofascial pain syndrome [Unknown]
  - Magnetic resonance imaging abnormal [Unknown]

NARRATIVE: CASE EVENT DATE: 20240924
